FAERS Safety Report 8990766 (Version 1)
Quarter: 2013Q1

REPORT INFORMATION
  Report Type: Spontaneous
  Country: US (occurrence: None)
  Receive Date: 20121226
  Receipt Date: 20121226
  Transmission Date: 20140127
  Serious: Yes (Hospitalization)
  Sender: FDA-Public Use
  Company Number: None

PATIENT
  Age: 34 Year
  Sex: Male

DRUGS (1)
  1. ERLOTINIB [Suspect]
     Route: 048
     Dates: start: 20121126

REACTIONS (5)
  - Unresponsive to stimuli [None]
  - Urethral haemorrhage [None]
  - Dizziness [None]
  - Presyncope [None]
  - Catheter site haemorrhage [None]
